FAERS Safety Report 8152742-2 (Version None)
Quarter: 2012Q1

REPORT INFORMATION
  Report Type: 
  Country: None (occurrence: None)
  Receive Date: 20120221
  Receipt Date: 20120216
  Transmission Date: 20120608
  Serious: Yes (Other)
  Sender: FDA-Public Use
  Company Number: US-JNJFOC-20100111273

PATIENT
  Age: 25 Year
  Sex: Female

DRUGS (7)
  1. TYLENOL-500 [Suspect]
     Indication: PRODUCT USED FOR UNKNOWN INDICATION
     Route: 048
  2. BENADRYL [Suspect]
     Route: 048
  3. UNSPECIFIED BIRTH CONTROL [Concomitant]
     Indication: CONTRACEPTION
  4. TYLENOL-500 [Suspect]
     Route: 048
  5. EXTRA STRENGTH TYLENOL [Suspect]
     Indication: PRODUCT USED FOR UNKNOWN INDICATION
     Route: 048
  6. EXTRA STRENGTH TYLENOL [Suspect]
     Route: 048
  7. BENADRYL [Suspect]
     Indication: PRODUCT USED FOR UNKNOWN INDICATION
     Route: 048

REACTIONS (7)
  - PRODUCT QUALITY ISSUE [None]
  - URTICARIA [None]
  - SWELLING [None]
  - CHILLS [None]
  - NAUSEA [None]
  - DIARRHOEA [None]
  - HEADACHE [None]
